FAERS Safety Report 9342553 (Version 1)
Quarter: 2013Q2

REPORT INFORMATION
  Report Type: Spontaneous
  Country: DE (occurrence: DE)
  Receive Date: 20130611
  Receipt Date: 20130611
  Transmission Date: 20140414
  Serious: Yes (Other)
  Sender: FDA-Public Use
  Company Number: DE-PFIZER INC-2013173822

PATIENT
  Age: 38 Year
  Sex: Female

DRUGS (5)
  1. PREGABALIN [Suspect]
     Dosage: UP TO 600 MG PER DAY FOR 2 MONTHS
  2. PREGABALIN [Suspect]
     Dosage: 25 MG STEPS PER DAY DOWN TO 350 MG
  3. VENLAFAXINE [Concomitant]
     Dosage: 150 MG, DAILY
  4. AGOMELATINE [Concomitant]
     Dosage: 25 MG, DAILY
  5. AMISULPRIDE [Concomitant]
     Dosage: 300 MG, DAILY

REACTIONS (9)
  - Drug abuse [Unknown]
  - Euphoric mood [Unknown]
  - Sedation [Unknown]
  - Drug dependence [Unknown]
  - Drug withdrawal syndrome [Unknown]
  - Hypertension [Unknown]
  - Tachycardia [Unknown]
  - Tremor [Unknown]
  - Psychomotor hyperactivity [Unknown]
